FAERS Safety Report 23590481 (Version 1)
Quarter: 2024Q1

REPORT INFORMATION
  Report Type: Spontaneous
  Country: US (occurrence: US)
  Receive Date: 20240304
  Receipt Date: 20240304
  Transmission Date: 20240410
  Serious: Yes (Death, Life-Threatening, Hospitalization, Other)
  Sender: FDA-Public Use
  Company Number: US-APOTEX-2017AP018234

PATIENT
  Age: 72 Year
  Sex: Male

DRUGS (3)
  1. CILOSTAZOL [Suspect]
     Active Substance: CILOSTAZOL
     Indication: Product used for unknown indication
     Dosage: UNK
     Route: 048
  2. TAMSULOSIN [Suspect]
     Active Substance: TAMSULOSIN
     Indication: Product used for unknown indication
     Dosage: UNK
     Route: 048
  3. METFORMIN [Concomitant]
     Active Substance: METFORMIN HYDROCHLORIDE
     Indication: Product used for unknown indication
     Dosage: UNK
     Route: 065

REACTIONS (14)
  - Cardio-respiratory arrest [Fatal]
  - Hypotension [Fatal]
  - Intentional overdose [Fatal]
  - Drug interaction [Unknown]
  - Agitation [Unknown]
  - Mental status changes [Unknown]
  - Confusional state [Unknown]
  - Abnormal behaviour [Unknown]
  - Neck pain [Unknown]
  - Nausea [Unknown]
  - Vomiting [Unknown]
  - Diarrhoea [Unknown]
  - Headache [Unknown]
  - Mental impairment [Unknown]
